FAERS Safety Report 26093737 (Version 1)
Quarter: 2025Q4

REPORT INFORMATION
  Report Type: Spontaneous
  Country: US (occurrence: None)
  Receive Date: 20251126
  Receipt Date: 20251126
  Transmission Date: 20260118
  Serious: Yes (Hospitalization)
  Sender: FDA-CTU
  Company Number: None

PATIENT
  Sex: Female

DRUGS (1)
  1. ENBREL [Suspect]
     Active Substance: ETANERCEPT
     Indication: Product used for unknown indication
     Dosage: INJECT 1 ML (50 MG TOTAL) UNDER THE SKIN EVERY 7 (SEVEN) DAYS?
     Route: 058
     Dates: start: 20190328

REACTIONS (4)
  - Pneumonia [None]
  - Loss of personal independence in daily activities [None]
  - Pain [None]
  - Therapy interrupted [None]
